FAERS Safety Report 8277277-8 (Version None)
Quarter: 2012Q2

REPORT INFORMATION
  Report Type: 
  Country: None (occurrence: None)
  Receive Date: 20120412
  Receipt Date: 20120403
  Transmission Date: 20120825
  Serious: Yes (Other)
  Sender: FDA-Public Use
  Company Number: BR-GLAXOSMITHKLINE-A0966438A

PATIENT
  Sex: Female
  Weight: 90 kg

DRUGS (5)
  1. FLUTICASONE PROPIONATE/SALMETEROL [Suspect]
     Indication: ASTHMA
     Dosage: 1PUFF TWICE PER DAY
     Route: 055
     Dates: start: 20110701
  2. ARTROLIVE [Concomitant]
     Dosage: 1TAB THREE TIMES PER DAY
     Dates: start: 20110601
  3. NEBULIZER [Suspect]
  4. OLMESARTAN MEDOXOMIL [Concomitant]
     Dosage: 1TAB PER DAY
     Dates: start: 20060101
  5. CLONIDINE HYDROCHLORIDE [Concomitant]
     Dosage: 100MG PER DAY
     Dates: start: 20100101

REACTIONS (4)
  - ASTHMATIC CRISIS [None]
  - HYPERTENSION [None]
  - HEART RATE INCREASED [None]
  - TREATMENT NONCOMPLIANCE [None]
